FAERS Safety Report 4847882-7 (Version None)
Quarter: 2005Q4

REPORT INFORMATION
  Report Type: 
  Country: None (occurrence: None)
  Receive Date: 20051207
  Receipt Date: 20051207
  Transmission Date: 20060501
  Serious: No
  Sender: FDA-Public Use
  Company Number: None

PATIENT
  Age: 47 Year
  Sex: Male
  Weight: 98.8842 kg

DRUGS (1)
  1. NORTRIPTYLINE   25 MG [Suspect]
     Dosage: 25 MG   AMHS   PO
     Route: 048

REACTIONS (1)
  - DRUG LEVEL INCREASED [None]
